FAERS Safety Report 8313314-X (Version None)
Quarter: 2012Q2

REPORT INFORMATION
  Report Type: 
  Country: None (occurrence: None)
  Receive Date: 20120426
  Receipt Date: 20120418
  Transmission Date: 20120825
  Serious: Yes (Hospitalization)
  Sender: FDA-Public Use
  Company Number: PHHY2012FR033692

PATIENT
  Sex: Male

DRUGS (7)
  1. GLUCOPHAGE [Concomitant]
  2. DILTIAZEM HCL [Concomitant]
  3. ATACAND [Concomitant]
  4. TASIGNA [Suspect]
     Indication: CHRONIC MYELOID LEUKAEMIA
     Dosage: 400 MG, BID
     Route: 048
     Dates: start: 20090501
  5. TASIGNA [Suspect]
     Dosage: 300 MG, BID
     Route: 048
     Dates: start: 20100301
  6. LEVOTHYROXINE SODIUM [Concomitant]
  7. ALDALIX [Concomitant]

REACTIONS (4)
  - LUNG ADENOCARCINOMA [None]
  - PRURITUS [None]
  - NEOPLASM MALIGNANT [None]
  - ANGINA PECTORIS [None]
